FAERS Safety Report 9899922 (Version 1)
Quarter: 2014Q1

REPORT INFORMATION
  Report Type: Not Available
  Country: US (occurrence: US)
  Receive Date: 20140214
  Receipt Date: 20140214
  Transmission Date: 20141002
  Serious: No
  Sender: FDA-Public Use
  Company Number: US-VIVUS-2013V1000810

PATIENT
  Age: 28 Year
  Sex: Female
  Weight: 68.1 kg

DRUGS (3)
  1. QSYMIA 3.75MG/23MG [Suspect]
     Indication: WEIGHT DECREASED
     Route: 048
     Dates: start: 20131021, end: 20131023
  2. DIAZEPAM [Concomitant]
     Indication: CONVULSION
     Dosage: STARTED YEARS AGO
     Route: 048
  3. UNSPECIFIED BIRTH CONTROL PILLS [Concomitant]
     Indication: PROPHYLAXIS
     Route: 048

REACTIONS (2)
  - Convulsion [Recovered/Resolved]
  - Pharyngitis streptococcal [Not Recovered/Not Resolved]
